FAERS Safety Report 5514790-8 (Version None)
Quarter: 2007Q4

REPORT INFORMATION
  Report Type: 
  Country: None (occurrence: None)
  Receive Date: 20071109
  Receipt Date: 20071030
  Transmission Date: 20080405
  Serious: Yes (Hospitalization, Congenital Anomaly)
  Sender: FDA-Public Use
  Company Number: 239355K07USA

PATIENT
  Age: 40 Day
  Sex: Female
  Weight: 2.6005 kg

DRUGS (1)
  1. REBIF [Suspect]
     Indication: MULTIPLE SCLEROSIS
     Dosage: I.U.
     Route: 015
     Dates: start: 20060619, end: 20070201

REACTIONS (9)
  - CAESAREAN SECTION [None]
  - CARDIAC MURMUR [None]
  - DRUG EXPOSURE DURING PREGNANCY [None]
  - DYSPNOEA [None]
  - FOETAL MOVEMENTS DECREASED [None]
  - HYPOVENTILATION [None]
  - MUCOUS MEMBRANE DISORDER [None]
  - PREMATURE BABY [None]
  - SMALL FOR DATES BABY [None]
